FAERS Safety Report 21860866 (Version 1)
Quarter: 2023Q1

REPORT INFORMATION
  Report Type: Spontaneous
  Country: US (occurrence: None)
  Receive Date: 20230111
  Receipt Date: 20230111
  Transmission Date: 20230417
  Serious: Yes (Hospitalization, Disabling, Other)
  Sender: FDA-Public Use
  Company Number: None

PATIENT
  Age: 55 Year
  Sex: Male

DRUGS (4)
  1. BRIVIACT [Suspect]
     Active Substance: BRIVARACETAM
     Indication: Seizure
     Dosage: FREQUENCY :   TWICE FOR THREE PILLS ONCE A DAY FOR 4 PILLS  BY MOUTH?50MG TWICE A DAY  12 HOURS
     Route: 048
     Dates: start: 20180129, end: 202009
  2. ASPIRIN [Concomitant]
     Active Substance: ASPIRIN
  3. POTASSIUM CHLORIDE [Concomitant]
     Active Substance: POTASSIUM CHLORIDE
  4. VITAMIN B6 [Concomitant]
     Active Substance: PYRIDOXINE HYDROCHLORIDE

REACTIONS (3)
  - Illness [None]
  - Seizure [None]
  - Impaired work ability [None]

NARRATIVE: CASE EVENT DATE: 20180128
